FAERS Safety Report 17298141 (Version 4)
Quarter: 2020Q2

REPORT INFORMATION
  Report Type: Report from Study
  Country: US (occurrence: US)
  Receive Date: 20200122
  Receipt Date: 20200406
  Transmission Date: 20200713
  Serious: Yes (Hospitalization)
  Sender: FDA-Public Use
  Company Number: US-ROCHE-2522008

PATIENT
  Age: 70 Year
  Sex: Female

DRUGS (3)
  1. OCREVUS [Suspect]
     Active Substance: OCRELIZUMAB
     Route: 042
     Dates: start: 2018
  2. LUCENTIS [Suspect]
     Active Substance: RANIBIZUMAB
     Indication: PRIMARY PROGRESSIVE MULTIPLE SCLEROSIS
     Dosage: ONGOING :YES
     Route: 065
     Dates: start: 20190614
  3. OCREVUS [Suspect]
     Active Substance: OCRELIZUMAB
     Indication: PRIMARY PROGRESSIVE MULTIPLE SCLEROSIS
     Dosage: ONGOING: YES?DATE OF TREATMENT = 14/JUN/2019, 28/JUN/2019
     Route: 042
     Dates: start: 20190701

REACTIONS (9)
  - Taste disorder [Unknown]
  - Appendicitis [Recovered/Resolved]
  - Bladder disorder [Unknown]
  - Parosmia [Not Recovered/Not Resolved]
  - Colon gangrene [Recovered/Resolved]
  - Product use in unapproved indication [Unknown]
  - Hiatus hernia [Not Recovered/Not Resolved]
  - Alopecia [Not Recovered/Not Resolved]
  - Off label use [Unknown]

NARRATIVE: CASE EVENT DATE: 201906
